FAERS Safety Report 7014423-8 (Version None)
Quarter: 2010Q3

REPORT INFORMATION
  Report Type: 
  Country: None (occurrence: None)
  Receive Date: 20100927
  Receipt Date: 20100714
  Transmission Date: 20110219
  Serious: No
  Sender: FDA-Public Use
  Company Number: US-MYLANLABS-2010S1012708

PATIENT
  Age: 79 Year
  Sex: Male
  Weight: 70.31 kg

DRUGS (1)
  1. CARVEDILOL [Suspect]
     Indication: CARDIAC DISORDER
     Route: 048
     Dates: start: 20100701

REACTIONS (1)
  - FATIGUE [None]
